FAERS Safety Report 5263071-9 (Version None)
Quarter: 2007Q1

REPORT INFORMATION
  Report Type: 
  Country: None (occurrence: None)
  Receive Date: 20070312
  Receipt Date: 20070302
  Transmission Date: 20070707
  Serious: Yes (Hospitalization, Other)
  Sender: FDA-Public Use
  Company Number: US-PFIZER INC-2006050492

PATIENT
  Sex: Female
  Weight: 72.6 kg

DRUGS (6)
  1. LYRICA [Suspect]
     Indication: NEUROPATHY PERIPHERAL
     Route: 048
  2. NEURONTIN [Suspect]
     Indication: NEUROPATHY PERIPHERAL
     Dosage: TEXT:UNKNOWN-FREQ:UNKNOWN
     Route: 065
  3. HYDROXYZINE PAMOATE [Suspect]
     Indication: PAIN
     Dosage: TEXT:UNKNOWN-FREQ:UNKNOWN
     Route: 065
  4. DARVOCET-N 100 [Concomitant]
     Route: 065
  5. WARFARIN SODIUM [Concomitant]
     Route: 065
  6. COZAAR [Concomitant]
     Route: 065

REACTIONS (6)
  - DRUG DELIVERY DEVICE IMPLANTATION [None]
  - DRUG INEFFECTIVE [None]
  - FLUID RETENTION [None]
  - PAIN [None]
  - SURGERY [None]
  - WEIGHT INCREASED [None]
